FAERS Safety Report 26115487 (Version 1)
Quarter: 2025Q4

REPORT INFORMATION
  Report Type: Spontaneous
  Country: JP (occurrence: JP)
  Receive Date: 20251203
  Receipt Date: 20251203
  Transmission Date: 20260119
  Serious: Yes (Other)
  Sender: ROCHE
  Company Number: JP-CHUGAI-2025030152AA

PATIENT
  Age: 80 Year
  Sex: Male

DRUGS (6)
  1. TECENTRIQ [Suspect]
     Active Substance: ATEZOLIZUMAB
     Indication: Hepatocellular carcinoma
     Dosage: 1200 MILLIGRAM, ONCE/3WEEKS
     Route: 042
     Dates: start: 20241210
  2. AVASTIN [Suspect]
     Active Substance: BEVACIZUMAB
     Indication: Hepatocellular carcinoma
     Dosage: 1100 MILLIGRAM, ONCE/3WEEKS
     Route: 042
     Dates: start: 20241210, end: 2025
  3. ENTRESTO [Concomitant]
     Active Substance: SACUBITRIL\VALSARTAN
     Dosage: 200 MILLIGRAM, QD, AFTER BREAKFAST
     Route: 050
  4. NIFEDIPINE [Concomitant]
     Active Substance: NIFEDIPINE
     Dosage: 40 MILLIGRAM, QD, AFTER BREAKFAST
     Route: 050
  5. EZETIMIBE [Concomitant]
     Active Substance: EZETIMIBE
     Dosage: 10 MILLIGRAM, QD,  AFTER BREAKFAST
     Route: 050
  6. LUSEOGLIFLOZIN [Concomitant]
     Active Substance: LUSEOGLIFLOZIN
     Dosage: 5 MILLIGRAM, QD,  AFTER BREAKFAST
     Route: 050

REACTIONS (2)
  - Proteinuria [Recovered/Resolved]
  - Renal impairment [Unknown]

NARRATIVE: CASE EVENT DATE: 20250916
